FAERS Safety Report 24542181 (Version 2)
Quarter: 2024Q4

REPORT INFORMATION
  Report Type: Spontaneous
  Country: US (occurrence: US)
  Receive Date: 20241023
  Receipt Date: 20241030
  Transmission Date: 20250114
  Serious: Yes (Other)
  Sender: BIOMARIN
  Company Number: US-SA-2024SA304256

PATIENT

DRUGS (1)
  1. LARONIDASE [Suspect]
     Active Substance: LARONIDASE
     Indication: Mucopolysaccharidosis I
     Dosage: 17.4 (UNITS UNSPECIFIED), QW
     Route: 042

REACTIONS (5)
  - Dependence on respirator [Not Recovered/Not Resolved]
  - Speech disorder [Not Recovered/Not Resolved]
  - Poor venous access [Unknown]
  - Device occlusion [Unknown]
  - Therapeutic response decreased [Unknown]
